FAERS Safety Report 24128879 (Version 1)
Quarter: 2024Q3

REPORT INFORMATION
  Report Type: Spontaneous
  Country: DE (occurrence: DE)
  Receive Date: 20240723
  Receipt Date: 20240723
  Transmission Date: 20241016
  Serious: Yes (Other)
  Sender: JOHNSON AND JOHNSON
  Company Number: DE-BAYER-2024A106276

PATIENT
  Age: 82 Year
  Sex: Female

DRUGS (2)
  1. RIVAROXABAN [Suspect]
     Active Substance: RIVAROXABAN
     Indication: Atrial fibrillation
     Dosage: 20 MG, QD
     Route: 048
     Dates: end: 20240719
  2. RIVAROXABAN [Suspect]
     Active Substance: RIVAROXABAN
     Indication: Brain neoplasm benign
     Route: 048

REACTIONS (2)
  - Internal haemorrhage [Unknown]
  - Rheumatic disorder [Unknown]
